FAERS Safety Report 10821660 (Version 1)
Quarter: 2015Q1

REPORT INFORMATION
  Report Type: Spontaneous
  Country: US (occurrence: None)
  Receive Date: 20150218
  Receipt Date: 20150218
  Transmission Date: 20150721
  Serious: No
  Sender: FDA-Public Use
  Company Number: None

PATIENT
  Age: 13 Year
  Sex: Female

DRUGS (1)
  1. UP+UP ACNE WASH OIL FREE [Suspect]
     Active Substance: SALICYLIC ACID

REACTIONS (3)
  - Application site burn [None]
  - Drug effect decreased [None]
  - Burns first degree [None]

NARRATIVE: CASE EVENT DATE: 20150114
